FAERS Safety Report 21784453 (Version 2)
Quarter: 2022Q4

REPORT INFORMATION
  Report Type: Spontaneous
  Country: US (occurrence: US)
  Receive Date: 20221227
  Receipt Date: 20221229
  Transmission Date: 20230113
  Serious: Yes (Other)
  Sender: FDA-Public Use
  Company Number: US-BRISTOL-MYERS SQUIBB COMPANY-2022-159220

PATIENT
  Age: 79 Year
  Sex: Male
  Weight: 108.86 kg

DRUGS (2)
  1. ORENCIA [Suspect]
     Active Substance: ABATACEPT
     Indication: Rheumatoid arthritis
     Dosage: FREQ: ONCE A MONTH
     Route: 042
  2. GABAPENTIN [Concomitant]
     Active Substance: GABAPENTIN
     Indication: Diabetes mellitus

REACTIONS (3)
  - Infection [Unknown]
  - Device related infection [Unknown]
  - Wound infection [Unknown]

NARRATIVE: CASE EVENT DATE: 20221001
